FAERS Safety Report 10625840 (Version 1)
Quarter: 2014Q4

REPORT INFORMATION
  Report Type: Spontaneous
  Country: FR (occurrence: FR)
  Receive Date: 20141204
  Receipt Date: 20141204
  Transmission Date: 20150529
  Serious: Yes (Other)
  Sender: FDA-Public Use
  Company Number: ALCN2014FR006683

PATIENT
  Age: 8 Year
  Sex: Male
  Weight: 33 kg

DRUGS (1)
  1. CYCLOPENTOLATE HCL [Suspect]
     Active Substance: CYCLOPENTOLATE HYDROCHLORIDE
     Indication: OPHTHALMOLOGICAL EXAMINATION
     Dosage: 4 GTT, (1 DROP EVERY 15 MINUTES DURING 1 HOUR)
     Route: 047
     Dates: start: 20141107, end: 20141107

REACTIONS (2)
  - Somnolence [Recovered/Resolved]
  - Abdominal pain [Recovered/Resolved]

NARRATIVE: CASE EVENT DATE: 20141107
